FAERS Safety Report 4828255-X (Version None)
Quarter: 2005Q4

REPORT INFORMATION
  Report Type: 
  Country: None (occurrence: None)
  Receive Date: 20051115
  Receipt Date: 20050831
  Transmission Date: 20060501
  Serious: No
  Sender: FDA-Public Use
  Company Number: US-BRISTOL-MYERS SQUIBB COMPANY-13096565

PATIENT
  Sex: Female
  Weight: 120 kg

DRUGS (1)
  1. SUSTIVA [Suspect]
     Indication: HIV INFECTION

REACTIONS (3)
  - ABNORMAL DREAMS [None]
  - NIGHTMARE [None]
  - WEIGHT INCREASED [None]
